FAERS Safety Report 9173395 (Version 1)
Quarter: 2013Q1

REPORT INFORMATION
  Report Type: Spontaneous
  Country: GB (occurrence: None)
  Receive Date: 20130314
  Receipt Date: 20130314
  Transmission Date: 20140127
  Serious: Yes (Other)
  Sender: FDA-Public Use
  Company Number: 2013-00710

PATIENT
  Age: 55 Year
  Sex: Female

DRUGS (12)
  1. QUINAPRIL [Suspect]
     Indication: PRODUCT USED FOR UNKNOWN INDICATION
     Dates: start: 20121108, end: 20130101
  2. ATENOLOL (UNKNOWN) [Concomitant]
  3. BETAMETHASONE (BETAMETHASONE VALERATE) (UNKNOWN) [Concomitant]
  4. CLOBETASTONE (CLOBETASONE BUTYRATE) (UNKNOWN) [Concomitant]
  5. ISOPROOYL MYRISTATE + LIQUID PARAFFIN (DOUBLEBASE) (UNKNOWN) [Concomitant]
  6. GLICLAZIDE (UNKNOWN) [Concomitant]
  7. HYDROCORTISONE (UNKNOWN) [Concomitant]
  8. LANSOPRAZOLE (UNKNOWN) [Concomitant]
  9. METFORMIN (UNKNOWN) [Concomitant]
  10. NAPROXEN (UNKNOWN) [Concomitant]
  11. QUININE (UNKNOWN) [Concomitant]
  12. SIMVASTATIN (UNKNOWN) (SIMVASTATIN) [Concomitant]

REACTIONS (2)
  - Palpitations [None]
  - Product substitution issue [None]
